FAERS Safety Report 18633154 (Version 1)
Quarter: 2020Q4

REPORT INFORMATION
  Report Type: Spontaneous
  Country: US (occurrence: US)
  Receive Date: 20201217
  Receipt Date: 20201217
  Transmission Date: 20210114
  Serious: No
  Sender: FDA-Public Use
  Company Number: None

PATIENT
  Sex: Female

DRUGS (8)
  1. CELECOXIB. [Concomitant]
     Active Substance: CELECOXIB
  2. ROSUVASTION [Concomitant]
  3. HUMIRA [Suspect]
     Active Substance: ADALIMUMAB
     Indication: HIDRADENITIS
     Dosage: ?          OTHER FREQUENCY:WEEKLY;?
     Route: 058
     Dates: start: 20190709
  4. TIZANDINE [Concomitant]
     Active Substance: TIZANIDINE
  5. HYDROCHLOROT [Concomitant]
     Active Substance: HYDROCHLOROTHIAZIDE
  6. LISINOPRIL. [Concomitant]
     Active Substance: LISINOPRIL
  7. MONTELUKAST [Concomitant]
     Active Substance: MONTELUKAST SODIUM
  8. TRAMADOL HCL [Concomitant]
     Active Substance: TRAMADOL HYDROCHLORIDE

REACTIONS (2)
  - Surgery [None]
  - Therapy interrupted [None]
